FAERS Safety Report 21477309 (Version 1)
Quarter: 2022Q4

REPORT INFORMATION
  Report Type: Report from Study
  Country: FR (occurrence: FR)
  Receive Date: 20221019
  Receipt Date: 20221019
  Transmission Date: 20230113
  Serious: Yes (Other)
  Sender: FDA-Public Use
  Company Number: FR-Accord-282195

PATIENT

DRUGS (3)
  1. AMLODIPINE [Suspect]
     Active Substance: AMLODIPINE BESYLATE
     Indication: Product used for unknown indication
  2. PERINDOPRIL [Suspect]
     Active Substance: PERINDOPRIL
     Indication: Product used for unknown indication
  3. CICLETANINE HYDROCHLORIDE [Suspect]
     Active Substance: CICLETANINE HYDROCHLORIDE
     Indication: Product used for unknown indication

REACTIONS (2)
  - Cardiotoxicity [Unknown]
  - Toxicity to various agents [Unknown]
